FAERS Safety Report 21841811 (Version 1)
Quarter: 2023Q1

REPORT INFORMATION
  Report Type: Spontaneous
  Country: FR (occurrence: FR)
  Receive Date: 20230110
  Receipt Date: 20230110
  Transmission Date: 20230418
  Serious: Yes (Other)
  Sender: FDA-Public Use
  Company Number: None

PATIENT
  Age: 71 Year
  Sex: Female
  Weight: 87 kg

DRUGS (10)
  1. DAPTOMYCIN [Suspect]
     Active Substance: DAPTOMYCIN
     Indication: Pyelonephritis acute
     Dosage: 700 MG 1 DAY/2
     Dates: start: 20221111, end: 20221114
  2. AMIKACIN [Suspect]
     Active Substance: AMIKACIN
     Indication: Bacterial pyelonephritis
     Dates: start: 20221111, end: 20221111
  3. AZTREONAM [Suspect]
     Active Substance: AZTREONAM
     Indication: Pyelonephritis acute
     Dates: start: 20221111, end: 20221111
  4. METRONIDAZOLE [Concomitant]
     Active Substance: METRONIDAZOLE
     Indication: Pyelonephritis acute
     Dates: start: 20221111, end: 20221111
  5. AZTREONAM [Suspect]
     Active Substance: AZTREONAM
     Indication: Pyelonephritis acute
     Dosage: 3G CONTINUOUS
     Dates: start: 20221114, end: 20221115
  6. METRONIDAZOLE [Concomitant]
     Active Substance: METRONIDAZOLE
     Indication: Pyelonephritis acute
     Dates: start: 20221114, end: 20221115
  7. METRONIDAZOLE [Concomitant]
     Active Substance: METRONIDAZOLE
     Indication: Pyelonephritis acute
     Dates: start: 20221114, end: 20221114
  8. METRONIDAZOLE [Concomitant]
     Active Substance: METRONIDAZOLE
     Indication: Pyelonephritis acute
     Dosage: 250 MG 3 FOIS/J
     Dates: start: 20221111, end: 20221114
  9. DAPTOMYCIN [Suspect]
     Active Substance: DAPTOMYCIN
     Indication: Pyelonephritis acute
     Dosage: 800 MG 1 DAY/2
     Dates: start: 20221114, end: 20221115
  10. AZTREONAM [Suspect]
     Active Substance: AZTREONAM
     Indication: Pyelonephritis acute
     Dosage: 2G CONTINUOUS
     Dates: start: 20221112, end: 20221114

REACTIONS (1)
  - Cholestatic liver injury [Recovering/Resolving]

NARRATIVE: CASE EVENT DATE: 20221112
